FAERS Safety Report 7486585-X (Version None)
Quarter: 2011Q2

REPORT INFORMATION
  Report Type: 
  Country: None (occurrence: None)
  Receive Date: 20110517
  Receipt Date: 20110509
  Transmission Date: 20111010
  Serious: Yes (Death, Hospitalization)
  Sender: FDA-Public Use
  Company Number: ES-AMGEN-ESPCT2011017604

PATIENT
  Age: 62 Year
  Sex: Male

DRUGS (9)
  1. LEUCOVORIN CALCIUM [Suspect]
     Indication: COLORECTAL CANCER
     Dosage: 400 MG/M2, Q2WK
     Route: 042
     Dates: start: 20110328
  2. OMEPRAZOLE [Concomitant]
     Dosage: 20 MG, QD
     Route: 048
  3. OXALIPLATIN [Suspect]
     Indication: COLORECTAL CANCER
     Dosage: 85 MG/M2, Q2WK
     Route: 042
     Dates: start: 20110328
  4. COROPRES [Concomitant]
     Dosage: 0.25 MG, BID
     Route: 048
     Dates: start: 19940101
  5. ADALAT [Concomitant]
     Dosage: 30 MG, QD
     Route: 048
     Dates: start: 19940101
  6. VENLAFAXINE [Concomitant]
     Dosage: 0.75 MG, QD
     Route: 048
     Dates: start: 20000101
  7. PANITUMUMAB [Suspect]
     Indication: COLORECTAL CANCER
     Dosage: 6 MG/KG, Q2WK
     Route: 042
     Dates: start: 20110328
  8. FLUOROURACIL [Suspect]
     Indication: COLORECTAL CANCER
     Dosage: UNK UNK, Q2WK
     Route: 042
     Dates: start: 20110328
  9. OMNIC [Concomitant]
     Dosage: 0.4 MG, QD
     Route: 048
     Dates: start: 19940101

REACTIONS (3)
  - VOMITING [None]
  - INTESTINAL OBSTRUCTION [None]
  - AMAUROSIS FUGAX [None]
